FAERS Safety Report 24807004 (Version 2)
Quarter: 2025Q4

REPORT INFORMATION
  Report Type: Report from Study
  Country: US (occurrence: US)
  Receive Date: 20250104
  Receipt Date: 20251224
  Transmission Date: 20260117
  Serious: Yes (Death)
  Sender: JOHNSON AND JOHNSON
  Company Number: US-JNJFOC-20241269481

PATIENT
  Age: 80 Year
  Sex: Male

DRUGS (1)
  1. CILTACABTAGENE AUTOLEUCEL [Suspect]
     Active Substance: CILTACABTAGENE AUTOLEUCEL
     Indication: Plasma cell myeloma
     Dosage: 50.7*10^6 CAR-T CELLS

REACTIONS (4)
  - Cytokine release syndrome [Fatal]
  - Respiratory failure [Fatal]
  - Bacterial infection [Fatal]
  - Embolism [Fatal]
